FAERS Safety Report 16905068 (Version 1)
Quarter: 2019Q4

REPORT INFORMATION
  Report Type: Spontaneous
  Country: US (occurrence: US)
  Receive Date: 20191010
  Receipt Date: 20191010
  Transmission Date: 20200122
  Serious: Yes (Death)
  Sender: FDA-Public Use
  Company Number: None

PATIENT
  Age: 72 Year
  Sex: Female

DRUGS (3)
  1. HYOSCYAMINE SUB 0.125 MG [Concomitant]
  2. MORPHINE SUL SOL 100/5 ML [Concomitant]
  3. SUTENT [Suspect]
     Active Substance: SUNITINIB MALATE
     Indication: RENAL CANCER
     Route: 048
     Dates: start: 20190911

REACTIONS (1)
  - Death [None]

NARRATIVE: CASE EVENT DATE: 20190913
